FAERS Safety Report 12480323 (Version 3)
Quarter: 2016Q3

REPORT INFORMATION
  Report Type: Spontaneous
  Country: None (occurrence: DO)
  Receive Date: 20160620
  Receipt Date: 20160809
  Transmission Date: 20161109
  Serious: Yes (Other)
  Sender: FDA-Public Use
  Company Number: DO-MERCK KGAA-1054024

PATIENT

DRUGS (1)
  1. NOVOTHYROX [Suspect]
     Active Substance: LEVOTHYROXINE SODIUM

REACTIONS (7)
  - Thyroid mass [None]
  - Dysphagia [None]
  - Throat irritation [None]
  - Anosmia [None]
  - Sensation of foreign body [None]
  - Menstrual disorder [None]
  - Influenza [None]
